FAERS Safety Report 22173565 (Version 1)
Quarter: 2023Q2

REPORT INFORMATION
  Report Type: Spontaneous
  Country: US (occurrence: US)
  Receive Date: 20230404
  Receipt Date: 20230404
  Transmission Date: 20230722
  Serious: Yes (Other)
  Sender: FDA-Public Use
  Company Number: US-BAYER-2023A044020

PATIENT
  Age: 26 Year
  Sex: Male

DRUGS (1)
  1. KOVALTRY [Suspect]
     Active Substance: ANTIHEMOPHILIC FACTOR, HUMAN RECOMBINANT
     Indication: Factor VIII deficiency
     Dosage: 1500 IU (1350-1650) SLOW IV PUSH EVERY OTHER DAY AND EVERY 24 HOURS
     Route: 042
     Dates: start: 202209

REACTIONS (1)
  - Haemarthrosis [None]
